FAERS Safety Report 8297102-9 (Version None)
Quarter: 2012Q2

REPORT INFORMATION
  Report Type: 
  Country: None (occurrence: None)
  Receive Date: 20120417
  Receipt Date: 20120417
  Transmission Date: 20120825
  Serious: Yes (Hospitalization)
  Sender: FDA-Public Use
  Company Number: None

PATIENT
  Age: 64 Year
  Sex: Male
  Weight: 138.3471 kg

DRUGS (2)
  1. AZACITIDINE [Suspect]
     Indication: MYELODYSPLASTIC SYNDROME
     Dosage: AZACITADINE 75 DAYS 1-5 SC
     Route: 058
     Dates: start: 20110704, end: 20120317
  2. PLEREXIFOR + G-CSF (5 G/KG/D X5) [Suspect]
     Indication: MYELODYSPLASTIC SYNDROME
     Dosage: PLEREXIFOR 440 G/KG/D X5 DAYS 1-5 SC
     Route: 058
     Dates: start: 20110704, end: 20120317

REACTIONS (1)
  - CELLULITIS [None]
